FAERS Safety Report 8991289 (Version 2)
Quarter: 2014Q2

REPORT INFORMATION
  Report Type: Report from Study
  Country: DE (occurrence: DE)
  Receive Date: 20121231
  Receipt Date: 20140522
  Transmission Date: 20141212
  Serious: Yes (Life-Threatening, Hospitalization)
  Sender: FDA-Public Use
  Company Number: DE-ROCHE-1173058

PATIENT
  Age: 82 Year
  Sex: Female
  Weight: 60.1 kg

DRUGS (3)
  1. METHOXY POLYETHYLENE GLYCOL-EPOETIN BETA [Suspect]
     Indication: NEPHROGENIC ANAEMIA
     Dosage: DATE OF MOST RECENT DOSE PRIOR TO ONSET OF ADVERSE EVENT: 13/FEB/2012
     Route: 042
     Dates: start: 20090107, end: 20120214
  2. DREISAVIT [Concomitant]
     Route: 048
     Dates: start: 20091021
  3. DECOSTRIOL [Concomitant]
     Route: 065
     Dates: start: 20111116

REACTIONS (2)
  - Peripheral arterial occlusive disease [Recovered/Resolved with Sequelae]
  - Wound infection [Recovered/Resolved with Sequelae]
